FAERS Safety Report 8415942-X (Version None)
Quarter: 2012Q2

REPORT INFORMATION
  Report Type: 
  Country: None (occurrence: None)
  Receive Date: 20120530
  Receipt Date: 20120515
  Transmission Date: 20120825
  Serious: Yes (Death, Other)
  Sender: FDA-Public Use
  Company Number: B0734834A

PATIENT
  Age: 24 Year
  Sex: Female

DRUGS (4)
  1. ZANAMIVIR (NO PREF. NAME) [Suspect]
     Indication: H1N1 INFLUENZA
  2. CEFUROXIME [Suspect]
     Indication: PHARYNGEAL DISORDER
  3. ERYTHROMYCIN [Suspect]
     Indication: PHARYNGEAL DISORDER
  4. OSELTAMIVIR [Suspect]
     Indication: H1N1 INFLUENZA

REACTIONS (7)
  - ABORTION SPONTANEOUS [None]
  - HEPATOMEGALY [None]
  - MULTI-ORGAN FAILURE [None]
  - MATERNAL EXPOSURE DURING PREGNANCY [None]
  - H1N1 INFLUENZA [None]
  - RESPIRATORY FAILURE [None]
  - ACUTE RESPIRATORY DISTRESS SYNDROME [None]
